FAERS Safety Report 12738419 (Version 1)
Quarter: 2016Q3

REPORT INFORMATION
  Report Type: Spontaneous
  Country: US (occurrence: US)
  Receive Date: 20160912
  Receipt Date: 20160912
  Transmission Date: 20161109
  Serious: No
  Sender: FDA-Public Use
  Company Number: US-SA-2016SA134493

PATIENT
  Age: 78 Year
  Sex: Male

DRUGS (4)
  1. TOUJEO [Suspect]
     Active Substance: INSULIN GLARGINE
     Indication: TYPE 2 DIABETES MELLITUS
     Dosage: DOSE:21 UNIT(S)
     Route: 065
     Dates: start: 201606
  2. HUMALOG [Concomitant]
     Active Substance: INSULIN LISPRO
     Dosage: WITH MEALS
  3. SOLOSTAR [Concomitant]
     Active Substance: DEVICE
     Indication: TYPE 2 DIABETES MELLITUS
     Dates: start: 201606
  4. LANTUS [Concomitant]
     Active Substance: INSULIN GLARGINE
     Dosage: IN THE MORNING

REACTIONS (1)
  - Blood glucose fluctuation [Unknown]
